FAERS Safety Report 6101512-5 (Version None)
Quarter: 2009Q1

REPORT INFORMATION
  Report Type: 
  Country: None (occurrence: None)
  Receive Date: 20090304
  Receipt Date: 20090224
  Transmission Date: 20090719
  Serious: Yes (Other)
  Sender: FDA-Public Use
  Company Number: US-BAYER-200841329NA

PATIENT
  Age: 23 Year
  Sex: Female
  Weight: 76 kg

DRUGS (1)
  1. MIRENA [Suspect]
     Indication: CONTRACEPTION
     Route: 015
     Dates: start: 20080501

REACTIONS (4)
  - BACK PAIN [None]
  - HEADACHE [None]
  - IUCD COMPLICATION [None]
  - MIGRAINE [None]
